FAERS Safety Report 11545487 (Version 1)
Quarter: 2015Q3

REPORT INFORMATION
  Report Type: Report from Study
  Country: US (occurrence: US)
  Receive Date: 20150924
  Receipt Date: 20150924
  Transmission Date: 20151125
  Serious: No
  Sender: FDA-Public Use
  Company Number: US-GLAXOSMITHKLINE-US2015GSK130174

PATIENT
  Age: 63 Year
  Sex: Male

DRUGS (1)
  1. BELIMUMAB [Suspect]
     Active Substance: BELIMUMAB
     Indication: SYSTEMIC LUPUS ERYTHEMATOSUS

REACTIONS (6)
  - Nausea [Unknown]
  - Malaise [Unknown]
  - Rhinorrhoea [Unknown]
  - Asthenia [Unknown]
  - Somnolence [Unknown]
  - Nasal congestion [Unknown]
